FAERS Safety Report 9093873 (Version 1)
Quarter: 2013Q1

REPORT INFORMATION
  Report Type: Report from Study
  Country: US (occurrence: US)
  Receive Date: 20130131
  Receipt Date: 20130131
  Transmission Date: 20140127
  Serious: No
  Sender: FDA-Public Use
  Company Number: US-ABBOTT-12P-163-1014055-00

PATIENT
  Age: 51 Year
  Sex: Female

DRUGS (5)
  1. HUMIRA [Suspect]
     Indication: CROHN^S DISEASE
     Route: 058
     Dates: start: 201209
  2. LISINOPRIL [Concomitant]
     Indication: HYPERTENSION
  3. PROTONIX [Concomitant]
     Indication: GASTROOESOPHAGEAL REFLUX DISEASE
  4. ANTARA [Concomitant]
     Indication: BLOOD CHOLESTEROL INCREASED
  5. HORMONE PATCH [Concomitant]
     Indication: HYSTERECTOMY

REACTIONS (2)
  - Back pain [Not Recovered/Not Resolved]
  - Kidney infection [Not Recovered/Not Resolved]
